FAERS Safety Report 10192326 (Version 2)
Quarter: 2014Q2

REPORT INFORMATION
  Report Type: Spontaneous
  Country: GB (occurrence: GB)
  Receive Date: 20140523
  Receipt Date: 20140530
  Transmission Date: 20141212
  Serious: Yes (Other)
  Sender: FDA-Public Use
  Company Number: GB-SANTEN INC.-INC-14-000132

PATIENT
  Age: 65 Year
  Sex: Male
  Weight: 72 kg

DRUGS (10)
  1. OFTAQUIX (LEVOFLOXACIN 0.5%) [Suspect]
     Dates: start: 20140430
  2. AMITRIPTYLINE HYDROCHLORIDE [Concomitant]
  3. CHEMOTHERAPY [Concomitant]
  4. CO-CODAMOL [Concomitant]
  5. CODEINE PHOSPHATE [Concomitant]
  6. LANSOPRAZOLE [Concomitant]
  7. PARACETAMOL [Concomitant]
  8. PREDNISOLONE [Concomitant]
  9. ZOPICLONE [Concomitant]
  10. CIPROFLOXACIN [Concomitant]

REACTIONS (1)
  - Tendonitis [Not Recovered/Not Resolved]
